FAERS Safety Report 6296850-X (Version None)
Quarter: 2009Q3

REPORT INFORMATION
  Report Type: 
  Country: None (occurrence: None)
  Receive Date: 20090804
  Receipt Date: 20090723
  Transmission Date: 20100115
  Serious: Yes (Other)
  Sender: FDA-Public Use
  Company Number: US-SANOFI-SYNTHELABO-A03200903244

PATIENT
  Sex: Female

DRUGS (2)
  1. ZOLPIDEM [Suspect]
     Indication: INSOMNIA
     Dosage: UNK
     Route: 048
  2. ZOLPIDEM [Suspect]
     Dosage: UNK
     Route: 048
     Dates: start: 20081030, end: 20081030

REACTIONS (5)
  - ACUTE PSYCHOSIS [None]
  - CONVERSION DISORDER [None]
  - DEMENTIA ALZHEIMER'S TYPE [None]
  - NIGHTMARE [None]
  - SCHIZOPHRENIA [None]
